FAERS Safety Report 9156942 (Version 1)
Quarter: 2013Q1

REPORT INFORMATION
  Report Type: Spontaneous
  Country: US (occurrence: None)
  Receive Date: 20130308
  Receipt Date: 20130308
  Transmission Date: 20140127
  Serious: Yes (Hospitalization)
  Sender: FDA-Public Use
  Company Number: None

PATIENT
  Sex: Male
  Weight: 61.1 kg

DRUGS (9)
  1. 5-FLUOROURACIL (5-FU) [Suspect]
  2. BEVACIZUMAB (RHUMAB VEGF) (704865) [Suspect]
  3. IRINOTECAN [Suspect]
  4. LEUCOVORIN CALCIUM [Suspect]
  5. ASA [Concomitant]
  6. LANSOPRAZOLE [Concomitant]
  7. LIPITOR [Concomitant]
  8. METFORMIN [Concomitant]
  9. THYROXINE [Concomitant]

REACTIONS (2)
  - Dehydration [None]
  - Hyperglycaemia [None]
